FAERS Safety Report 6289538-2 (Version None)
Quarter: 2009Q3

REPORT INFORMATION
  Report Type: 
  Country: None (occurrence: None)
  Receive Date: 20090730
  Receipt Date: 20090721
  Transmission Date: 20100115
  Serious: Yes (Other)
  Sender: FDA-Public Use
  Company Number: BR-JNJFOC-20090705284

PATIENT
  Age: 33 Year
  Sex: Female
  Weight: 53 kg

DRUGS (1)
  1. MICRONOR [Suspect]
     Indication: CONTRACEPTION
     Route: 065

REACTIONS (6)
  - ABDOMINAL DISTENSION [None]
  - MEDICATION ERROR [None]
  - MIGRAINE [None]
  - PELVIC PAIN [None]
  - PREMENSTRUAL SYNDROME [None]
  - VAGINAL HAEMORRHAGE [None]
